FAERS Safety Report 24042092 (Version 1)
Quarter: 2024Q3

REPORT INFORMATION
  Report Type: Report from Study
  Country: US (occurrence: US)
  Receive Date: 20240702
  Receipt Date: 20240702
  Transmission Date: 20241016
  Serious: Yes (Other)
  Sender: ABBVIE
  Company Number: US-ABBVIE-5806996

PATIENT
  Age: 75 Year
  Sex: Female
  Weight: 73 kg

DRUGS (7)
  1. HUMIRA [Suspect]
     Active Substance: ADALIMUMAB
     Indication: Crohn^s disease
     Dosage: FROM STRENGTH 40 MILLIGRAM
     Route: 058
     Dates: start: 20220427, end: 20240424
  2. HUMIRA [Suspect]
     Active Substance: ADALIMUMAB
     Dosage: FROM STRENGTH 40 MILLIGRAM
     Route: 058
     Dates: start: 20240612
  3. HUMIRA [Suspect]
     Active Substance: ADALIMUMAB
     Dosage: 2 PENS?LAST ADMIN DATE-APR 2022
     Route: 048
     Dates: start: 20220413
  4. CARVEDILOL [Concomitant]
     Active Substance: CARVEDILOL
     Indication: Hypertension
  5. ATORVASTATIN [Concomitant]
     Active Substance: ATORVASTATIN
     Indication: Hyperlipidaemia
  6. LOSARTAN [Concomitant]
     Active Substance: LOSARTAN
     Indication: Hypertension
  7. LEVOTHYROXINE [Concomitant]
     Active Substance: LEVOTHYROXINE\LEVOTHYROXINE SODIUM
     Indication: Hypothyroidism

REACTIONS (3)
  - Pseudolymphoma [Recovering/Resolving]
  - Arthralgia [Recovered/Resolved]
  - Limb mass [Recovered/Resolved]

NARRATIVE: CASE EVENT DATE: 20230401
